FAERS Safety Report 10176509 (Version 1)
Quarter: 2014Q2

REPORT INFORMATION
  Report Type: Report from Study
  Country: US (occurrence: US)
  Receive Date: 20140516
  Receipt Date: 20140516
  Transmission Date: 20141212
  Serious: Yes (Death, Hospitalization)
  Sender: FDA-Public Use
  Company Number: US-ALEXION PHARMACEUTICALS INC.-A201401782

PATIENT
  Sex: 0

DRUGS (13)
  1. SOLIRIS [Suspect]
     Indication: HAEMOLYTIC URAEMIC SYNDROME
     Dosage: 900 MG, QW
     Route: 042
     Dates: start: 20140429
  2. TACROLIMUS [Concomitant]
     Indication: IMMUNOSUPPRESSION
     Dosage: UNK
     Route: 065
     Dates: start: 20140101
  3. THYMOGLOBULIN [Concomitant]
     Indication: IMMUNOSUPPRESSION
     Dosage: UNK
     Route: 065
     Dates: start: 20140401
  4. ACYCLOVIR                          /00587301/ [Concomitant]
     Indication: PRODUCT USED FOR UNKNOWN INDICATION
     Dosage: 400 MG, UNK
     Route: 065
     Dates: start: 20140429
  5. AMLODIPINE [Concomitant]
     Indication: HYPERTENSION
     Dosage: 10 MG, UNK
     Route: 065
     Dates: start: 20140429
  6. CALCIUM CARBONATE [Concomitant]
     Indication: PRODUCT USED FOR UNKNOWN INDICATION
     Dosage: 1500 MG, UNK
     Route: 065
     Dates: start: 20140429
  7. CELLCEPT                           /01275102/ [Concomitant]
     Indication: IMMUNOSUPPRESSION
     Dosage: 600 MG, UNK
     Route: 065
     Dates: start: 20140429
  8. CIPROFLOXACIN [Concomitant]
     Indication: PRODUCT USED FOR UNKNOWN INDICATION
     Dosage: 500 MG, UNK
     Route: 065
     Dates: start: 20140429
  9. COLACE [Concomitant]
     Indication: PRODUCT USED FOR UNKNOWN INDICATION
     Dosage: 100 MG, UNK
     Route: 065
     Dates: start: 20140429
  10. NYSTATIN [Concomitant]
     Indication: PRODUCT USED FOR UNKNOWN INDICATION
     Dosage: UNK
     Route: 065
     Dates: start: 20140429
  11. PREDNISONE [Concomitant]
     Indication: STEROID THERAPY
     Dosage: 10 MG, UNK
     Route: 065
     Dates: start: 20140429
  12. PROTONIX [Concomitant]
     Indication: PRODUCT USED FOR UNKNOWN INDICATION
     Dosage: 40 MG, UNK
     Route: 065
     Dates: start: 20140429
  13. SENOKOT                            /00142201/ [Concomitant]
     Indication: PRODUCT USED FOR UNKNOWN INDICATION
     Dosage: 2 DF, UNK
     Route: 065
     Dates: start: 20140429

REACTIONS (1)
  - Death [Fatal]
